FAERS Safety Report 5227559-9 (Version None)
Quarter: 2007Q1

REPORT INFORMATION
  Report Type: 
  Country: None (occurrence: None)
  Receive Date: 20061201
  Receipt Date: 20061003
  Transmission Date: 20070707
  Serious: No
  Sender: FDA-Public Use
  Company Number: US200610000713

PATIENT
  Age: 58 Year
  Sex: Female

DRUGS (6)
  1. CYMBALTA [Suspect]
     Dosage: SEE IMAGE
     Route: 048
     Dates: start: 20060630, end: 20060728
  2. CYMBALTA [Suspect]
     Dosage: SEE IMAGE
     Route: 048
     Dates: start: 20060729, end: 20060815
  3. CYMBALTA [Suspect]
     Dosage: SEE IMAGE
     Route: 048
     Dates: start: 20060816, end: 20060901
  4. PREMARIN [Concomitant]
  5. ADVIL [Concomitant]
  6. FLUOXETINE HCL [Concomitant]

REACTIONS (9)
  - ABNORMAL DREAMS [None]
  - COUGH [None]
  - DEPRESSION [None]
  - DRY MOUTH [None]
  - ENERGY INCREASED [None]
  - INSOMNIA [None]
  - MUSCLE SPASMS [None]
  - RASH [None]
  - TINNITUS [None]
